FAERS Safety Report 13636325 (Version 2)
Quarter: 2017Q2

REPORT INFORMATION
  Report Type: Spontaneous
  Country: HR (occurrence: HR)
  Receive Date: 20170609
  Receipt Date: 20170620
  Transmission Date: 20170830
  Serious: Yes (Congenital Anomaly, Other)
  Sender: FDA-Public Use
  Company Number: HR-GLENMARK PHARMACEUTICALS-2017GMK027792

PATIENT
  Sex: Male

DRUGS (1)
  1. GABAPENTIN. [Suspect]
     Active Substance: GABAPENTIN
     Indication: EPILEPSY
     Dosage: UNK
     Route: 064

REACTIONS (5)
  - Psychomotor skills impaired [Unknown]
  - Epilepsy [Unknown]
  - Atrial septal defect [Unknown]
  - Severe myoclonic epilepsy of infancy [Unknown]
  - Foetal exposure during pregnancy [Unknown]
